FAERS Safety Report 15932534 (Version 1)
Quarter: 2019Q1

REPORT INFORMATION
  Report Type: Spontaneous
  Country: FR (occurrence: FR)
  Receive Date: 20190207
  Receipt Date: 20190207
  Transmission Date: 20190417
  Serious: Yes (Hospitalization)
  Sender: FDA-Public Use
  Company Number: FR-PFIZER INC-2019047755

PATIENT
  Age: 82 Year
  Sex: Female

DRUGS (1)
  1. DALACINE [Suspect]
     Active Substance: CLINDAMYCIN
     Indication: TOOTH ABSCESS
     Dosage: UNK
     Route: 048
     Dates: start: 20181205, end: 20181212

REACTIONS (4)
  - Cheilitis [Recovered/Resolved]
  - Conjunctivitis [Recovered/Resolved]
  - Pyrexia [Recovered/Resolved]
  - Rash morbilliform [Recovered/Resolved]

NARRATIVE: CASE EVENT DATE: 20181216
